FAERS Safety Report 7342755-2 (Version None)
Quarter: 2011Q1

REPORT INFORMATION
  Report Type: 
  Country: None (occurrence: None)
  Receive Date: 20110310
  Receipt Date: 20110304
  Transmission Date: 20110831
  Serious: Yes (Other)
  Sender: FDA-Public Use
  Company Number: GR-BRISTOL-MYERS SQUIBB COMPANY-15575343

PATIENT
  Age: 55 Year
  Sex: Female

DRUGS (2)
  1. AMPICILLIN [Suspect]
     Dosage: 1 DF= 20 MG/ML (1/100 AND 1/10)
     Route: 023
  2. AMOXICILLIN [Suspect]
     Dosage: 1 DF= 20 MG/ML (1/100 AND 1/10)
     Route: 023

REACTIONS (1)
  - RASH MACULO-PAPULAR [None]
